FAERS Safety Report 6866811-8 (Version None)
Quarter: 2010Q2

REPORT INFORMATION
  Report Type: 
  Country: None (occurrence: None)
  Receive Date: 20100528
  Receipt Date: 20100406
  Transmission Date: 20101027
  Serious: No
  Sender: FDA-Public Use
  Company Number: 2010043584

PATIENT
  Sex: Female

DRUGS (2)
  1. TOVIAZ [Suspect]
     Dosage: ORAL
     Route: 048
  2. PERCOCET [Concomitant]

REACTIONS (1)
  - CONSTIPATION [None]
